FAERS Safety Report 7834101-2 (Version None)
Quarter: 2011Q4

REPORT INFORMATION
  Report Type: 
  Country: None (occurrence: None)
  Receive Date: 20111024
  Receipt Date: 20111024
  Transmission Date: 20120403
  Serious: No
  Sender: FDA-Public Use
  Company Number: None

PATIENT
  Age: 50 Year
  Sex: Female
  Weight: 88.45 kg

DRUGS (2)
  1. SAVELLA [Suspect]
     Indication: BACK PAIN
     Dosage: 2 WEEK TITRATION PACK
     Route: 048
     Dates: start: 20111021, end: 20111022
  2. SAVELLA [Suspect]
     Indication: FIBROMYALGIA
     Dosage: 2 WEEK TITRATION PACK
     Route: 048
     Dates: start: 20111021, end: 20111022

REACTIONS (8)
  - NAUSEA [None]
  - FATIGUE [None]
  - INSOMNIA [None]
  - CONDITION AGGRAVATED [None]
  - HYPERHIDROSIS [None]
  - FIBROMYALGIA [None]
  - VOMITING [None]
  - SOMNOLENCE [None]
